FAERS Safety Report 6427601-3 (Version None)
Quarter: 2009Q4

REPORT INFORMATION
  Report Type: 
  Country: None (occurrence: None)
  Receive Date: 20091104
  Receipt Date: 20091023
  Transmission Date: 20100525
  Serious: Yes (Other)
  Sender: FDA-Public Use
  Company Number: GB-JNJCH-2009026159

PATIENT
  Sex: Female

DRUGS (2)
  1. MULTI-ACTION ACTIFED [Suspect]
     Indication: NASOPHARYNGITIS
     Dosage: TEXT:2 TABLETS UNSPECIFIED
     Route: 048
  2. MULTI-ACTION ACTIFED [Suspect]
     Indication: SINUS DISORDER

REACTIONS (5)
  - FUNGAL INFECTION [None]
  - HYPERAESTHESIA [None]
  - IMMUNE SYSTEM DISORDER [None]
  - RASH PRURITIC [None]
  - SKIN EXFOLIATION [None]
